FAERS Safety Report 8460436-9 (Version None)
Quarter: 2012Q2

REPORT INFORMATION
  Report Type: 
  Country: None (occurrence: None)
  Receive Date: 20120622
  Receipt Date: 20120608
  Transmission Date: 20120825
  Serious: Yes (Life-Threatening, Hospitalization, Other)
  Sender: FDA-Public Use
  Company Number: CHPA2012US004607

PATIENT
  Age: 73 Year
  Sex: Female

DRUGS (5)
  1. IRON SUPPLEMENTS [Concomitant]
     Dosage: UNK, UNK
     Dates: start: 20120201
  2. DILAUDID [Concomitant]
     Dosage: 2 MG, QD
     Route: 048
  3. TRANSDERM SCOP [Suspect]
     Indication: NAUSEA
     Dosage: UNK, UNK
     Route: 062
  4. DILANTIN [Concomitant]
     Dosage: UNK, UNK
  5. FLORESTOR [Concomitant]
     Dosage: UNK, UNK

REACTIONS (13)
  - FEAR [None]
  - APHAGIA [None]
  - SKIN IRRITATION [None]
  - DIARRHOEA [None]
  - CRYING [None]
  - FATIGUE [None]
  - INCORRECT DRUG ADMINISTRATION DURATION [None]
  - CHILLS [None]
  - MALAISE [None]
  - NAUSEA [None]
  - ANXIETY [None]
  - NERVOUSNESS [None]
  - ABNORMAL DREAMS [None]
